FAERS Safety Report 8189845-2 (Version None)
Quarter: 2012Q1

REPORT INFORMATION
  Report Type: 
  Country: None (occurrence: None)
  Receive Date: 20120307
  Receipt Date: 20111103
  Transmission Date: 20120608
  Serious: No
  Sender: FDA-Public Use
  Company Number: US-GLAXOSMITHKLINE-A0951868A

PATIENT
  Age: 66 Year
  Sex: Male

DRUGS (13)
  1. NITROSTAT [Concomitant]
  2. LIPITOR [Concomitant]
  3. OXYGEN [Concomitant]
  4. NEXIUM [Concomitant]
  5. CLONOPIN [Concomitant]
  6. ASA BABY [Concomitant]
  7. ATENOLOL [Concomitant]
  8. XANAX [Concomitant]
  9. ADVAIR DISKUS 100/50 [Concomitant]
  10. REQUIP [Suspect]
     Indication: RESTLESS LEGS SYNDROME
     Dosage: 1MG PER DAY
     Route: 048
     Dates: start: 20070101, end: 20070101
  11. ZESTRIL [Concomitant]
  12. REMERON [Concomitant]
  13. SPIRIVA [Concomitant]

REACTIONS (3)
  - PANIC ATTACK [None]
  - NAUSEA [None]
  - ABDOMINAL DISCOMFORT [None]
